FAERS Safety Report 19521779 (Version 1)
Quarter: 2021Q3

REPORT INFORMATION
  Report Type: Spontaneous
  Country: FR (occurrence: FR)
  Receive Date: 20210712
  Receipt Date: 20210712
  Transmission Date: 20211014
  Serious: Yes (Other)
  Sender: FDA-Public Use
  Company Number: FR-PFIZER INC-2021794713

PATIENT
  Age: 58 Year
  Sex: Female

DRUGS (6)
  1. VINCRISTINE SULFATE. [Suspect]
     Active Substance: VINCRISTINE SULFATE
     Indication: ASTROCYTOMA
     Dosage: 1.4 MG/M2
     Route: 042
     Dates: start: 20201117, end: 20210524
  2. PROCARBAZINE [Suspect]
     Active Substance: PROCARBAZINE
     Indication: ASTROCYTOMA
     Dosage: 60 MG/M2
     Route: 048
     Dates: start: 20201124, end: 20210424
  3. FORLAX [Concomitant]
     Active Substance: POLYETHYLENE GLYCOL 4000
     Dosage: UNK
  4. LEVOTHYROX [Concomitant]
     Active Substance: LEVOTHYROXINE
     Dosage: UNK
  5. ZOPHREN [ONDANSETRON HYDROCHLORIDE] [Suspect]
     Active Substance: ONDANSETRON
     Indication: PROPHYLAXIS OF NAUSEA AND VOMITING
     Dosage: UNK
     Route: 048
     Dates: start: 20201117, end: 20210524
  6. LOMUSTINE. [Suspect]
     Active Substance: LOMUSTINE
     Indication: ASTROCYTOMA
     Dosage: 90 MG/M2
     Route: 048
     Dates: start: 20201117, end: 20210524

REACTIONS (2)
  - Hepatic function abnormal [Recovering/Resolving]
  - Off label use [Unknown]

NARRATIVE: CASE EVENT DATE: 20201117
